FAERS Safety Report 12072103 (Version 1)
Quarter: 2016Q1

REPORT INFORMATION
  Report Type: Spontaneous
  Country: US (occurrence: US)
  Receive Date: 20160212
  Receipt Date: 20160212
  Transmission Date: 20160526
  Serious: Yes (Other)
  Sender: FDA-Public Use
  Company Number: US-BAYER-2016-026271

PATIENT
  Sex: Female

DRUGS (1)
  1. MIRALAX [Suspect]
     Active Substance: POLYETHYLENE GLYCOL 3350
     Indication: SURGERY

REACTIONS (6)
  - Asthenia [None]
  - Off label use [None]
  - Cerebrovascular accident [None]
  - Hyperhidrosis [None]
  - Pain [None]
  - Drug hypersensitivity [None]
